FAERS Safety Report 7216193-7 (Version None)
Quarter: 2011Q1

REPORT INFORMATION
  Report Type: 
  Country: None (occurrence: None)
  Receive Date: 20110105
  Receipt Date: 20110105
  Transmission Date: 20110831
  Serious: Yes (Hospitalization)
  Sender: FDA-Public Use
  Company Number: None

PATIENT
  Age: 5 Year
  Sex: Male
  Weight: 16.2 kg

DRUGS (1)
  1. KINERET [Suspect]
     Indication: CHRONIC INFANTILE NEUROLOGICAL CUTANEOUS AND ARTICULAR SYNDROME
     Dosage: 0.49ML, SUBCUTANEOUS
     Route: 058
     Dates: start: 20100514

REACTIONS (3)
  - VIRAL INFECTION [None]
  - DIARRHOEA [None]
  - DEHYDRATION [None]
